FAERS Safety Report 4354122-4 (Version None)
Quarter: 2004Q2

REPORT INFORMATION
  Report Type: 
  Country: None (occurrence: None)
  Receive Date: 20040506
  Receipt Date: 20040506
  Transmission Date: 20050107
  Serious: Yes (Other)
  Sender: FDA-Public Use
  Company Number: None

PATIENT
  Age: 70 Year
  Sex: Male
  Weight: 69.4003 kg

DRUGS (8)
  1. GAMIMUNE [Suspect]
     Dosage: 30 GM Q DAY X 4 DAYS [Q 3 WEEKS X 2 YEARS]
  2. SYNTHROID [Concomitant]
  3. VERAPAMIL [Concomitant]
  4. PRINIVIL [Concomitant]
  5. MATOPROLOL [Concomitant]
  6. LASIX [Concomitant]
  7. ALLOPURINOL TAB [Concomitant]
  8. GEMFIBROZIL [Concomitant]

REACTIONS (2)
  - BLOOD CREATININE INCREASED [None]
  - PHARMACEUTICAL PRODUCT COMPLAINT [None]
